FAERS Safety Report 5985297-9 (Version None)
Quarter: 2008Q4

REPORT INFORMATION
  Report Type: 
  Country: None (occurrence: None)
  Receive Date: 20081203
  Receipt Date: 20081118
  Transmission Date: 20090506
  Serious: Yes (Other)
  Sender: FDA-Public Use
  Company Number: 2008S1020730

PATIENT
  Age: 52 Year
  Sex: Female

DRUGS (9)
  1. FLUOXETINE [Suspect]
     Dosage: 20 MG;DAILY
     Dates: start: 19980601, end: 20011201
  2. SEROXAT (PAROXETINE) [Suspect]
     Dosage: 20 MG;DAILY
     Dates: start: 20011201, end: 20020801
  3. ALPRAZOLAM [Concomitant]
  4. LORAZEPAM [Concomitant]
  5. SERTRALINE [Suspect]
     Dosage: 50 MG;DAILY
     Dates: start: 20020801, end: 20021101
  6. VENLAFAXINE HCL [Suspect]
     Dosage: 75 MG;DAILY
     Dates: start: 20021101
  7. TRAZODONE HCL [Suspect]
     Dosage: 150 MG;DAILY
     Dates: start: 20021101
  8. SERTRALINE [Suspect]
     Dates: end: 20050601
  9. RISPERIDONE [Suspect]
     Dosage: 2 MG;DAILY
     Dates: end: 20050601

REACTIONS (5)
  - HYPERPROLACTINAEMIA [None]
  - JOINT SWELLING [None]
  - OSTEOPOROSIS [None]
  - RESPIRATORY DISTRESS [None]
  - RIB FRACTURE [None]
